FAERS Safety Report 12860096 (Version 1)
Quarter: 2016Q4

REPORT INFORMATION
  Report Type: Spontaneous
  Country: GB (occurrence: GB)
  Receive Date: 20161019
  Receipt Date: 20161019
  Transmission Date: 20170207
  Serious: Yes (Death, Other)
  Sender: FDA-Public Use
  Company Number: GB-JNJFOC-20161008632

PATIENT
  Age: 15 Year
  Sex: Female

DRUGS (7)
  1. SEROXAT [Suspect]
     Active Substance: PAROXETINE HYDROCHLORIDE
     Indication: DECREASED APPETITE
     Dosage: 14 TABLETS (OVERDOSE)
     Route: 065
     Dates: start: 2002
  2. DIAZEPAM. [Concomitant]
     Active Substance: DIAZEPAM
     Indication: PRODUCT USED FOR UNKNOWN INDICATION
     Route: 065
     Dates: start: 20120804
  3. SEROXAT [Suspect]
     Active Substance: PAROXETINE HYDROCHLORIDE
     Indication: DECREASED APPETITE
     Route: 065
     Dates: start: 1995
  4. FLUOXETINE [Concomitant]
     Active Substance: FLUOXETINE HYDROCHLORIDE
     Indication: PRODUCT USED FOR UNKNOWN INDICATION
     Route: 065
     Dates: start: 2012
  5. PARACETAMOL [Suspect]
     Active Substance: ACETAMINOPHEN
     Route: 065
  6. PARACETAMOL [Suspect]
     Active Substance: ACETAMINOPHEN
     Indication: PRODUCT USED FOR UNKNOWN INDICATION
     Route: 065
     Dates: start: 2002
  7. NUROFEN [Suspect]
     Active Substance: IBUPROFEN
     Indication: PRODUCT USED FOR UNKNOWN INDICATION
     Route: 065
     Dates: start: 2002

REACTIONS (8)
  - Depressed mood [Unknown]
  - Disturbance in attention [Unknown]
  - Suicidal ideation [Recovered/Resolved]
  - Poor quality sleep [Unknown]
  - Depression [Unknown]
  - Self-injurious ideation [Unknown]
  - Completed suicide [Fatal]
  - Intentional overdose [Recovered/Resolved]

NARRATIVE: CASE EVENT DATE: 1995
